FAERS Safety Report 18322195 (Version 2)
Quarter: 2020Q4

REPORT INFORMATION
  Report Type: Spontaneous
  Country: RO (occurrence: RO)
  Receive Date: 20200929
  Receipt Date: 20201029
  Transmission Date: 20210113
  Serious: Yes (Hospitalization, Other)
  Sender: FDA-Public Use
  Company Number: RO-REGENERON PHARMACEUTICALS, INC.-2020-78871

PATIENT

DRUGS (3)
  1. EYLEA [Suspect]
     Active Substance: AFLIBERCEPT
     Indication: DIABETES MELLITUS
     Dosage: UNK, OU
     Route: 031
     Dates: start: 20200825, end: 20200825
  2. EYLEA [Suspect]
     Active Substance: AFLIBERCEPT
     Indication: DIABETIC RETINAL OEDEMA
     Dosage: 2 MG, ONCE, LAST INJECTION IN LEFT EYE
     Route: 031
     Dates: start: 20200829, end: 20200829
  3. EYLEA [Suspect]
     Active Substance: AFLIBERCEPT
     Indication: DIABETIC RETINAL OEDEMA
     Dosage: UNK
     Route: 031
     Dates: start: 20200825, end: 20200825

REACTIONS (3)
  - Endophthalmitis [Recovering/Resolving]
  - Blindness [Recovering/Resolving]
  - Eye pain [Recovering/Resolving]

NARRATIVE: CASE EVENT DATE: 20200829
